FAERS Safety Report 8781995 (Version 1)
Quarter: 2012Q4

REPORT INFORMATION
  Report Type: 
  Country: US (occurrence: US)
  Receive Date: 20120913
  Receipt Date: 20120913
  Transmission Date: 20130627
  Serious: No
  Sender: FDA-Public Use
  Company Number: US-VERTEX PHARMACEUTICAL INC.-AE-2012-010148

PATIENT
  Sex: Female
  Weight: 74 kg

DRUGS (3)
  1. VX-950 [Suspect]
     Indication: HEPATITIS C
     Dosage: 750 mg, tid
     Route: 048
     Dates: start: 201205
  2. PEGASYS [Concomitant]
     Indication: HEPATITIS C
     Dosage: 180 ?g, UNK
     Route: 058
     Dates: start: 201205
  3. RIBAPAK [Concomitant]
     Indication: HEPATITIS C
     Dosage: UNK
     Route: 048
     Dates: start: 201204

REACTIONS (10)
  - Paranasal sinus hypersecretion [Unknown]
  - Paraesthesia [Unknown]
  - Headache [Unknown]
  - Pyrexia [Unknown]
  - Insomnia [Unknown]
  - Paraesthesia oral [Unknown]
  - Cough [Unknown]
  - Eructation [Unknown]
  - Nausea [Unknown]
  - Vomiting [Unknown]
